FAERS Safety Report 7563600-6 (Version None)
Quarter: 2011Q2

REPORT INFORMATION
  Report Type: 
  Country: None (occurrence: None)
  Receive Date: 20110621
  Receipt Date: 20110621
  Transmission Date: 20111010
  Serious: Yes (Disabling)
  Sender: FDA-Public Use
  Company Number: None

PATIENT
  Age: 42 Year
  Sex: Male
  Weight: 111.1313 kg

DRUGS (1)
  1. PREDNISONE [Suspect]
     Indication: OSTEONECROSIS
     Dosage: OFF + ON FOR YEARS

REACTIONS (2)
  - PAIN [None]
  - OSTEONECROSIS [None]
